FAERS Safety Report 6675116-X (Version None)
Quarter: 2010Q2

REPORT INFORMATION
  Report Type: 
  Country: None (occurrence: None)
  Receive Date: 20100409
  Receipt Date: 20100325
  Transmission Date: 20101027
  Serious: Yes (Other)
  Sender: FDA-Public Use
  Company Number: NL-JNJFOC-20100401769

PATIENT
  Sex: Male
  Weight: 80 kg

DRUGS (6)
  1. REMICADE [Suspect]
     Indication: RHEUMATOID ARTHRITIS
     Route: 042
  2. METHOTREXATE [Concomitant]
     Route: 058
  3. FOLIC ACID [Concomitant]
  4. PLAQUENIL [Concomitant]
  5. SULINDAC [Concomitant]
  6. AMLODIPINE [Concomitant]

REACTIONS (3)
  - HAEMOGLOBIN DECREASED [None]
  - LYMPHOCYTE MORPHOLOGY ABNORMAL [None]
  - OSTEOARTHRITIS [None]
